FAERS Safety Report 5928071-1 (Version None)
Quarter: 2008Q4

REPORT INFORMATION
  Report Type: 
  Country: None (occurrence: None)
  Receive Date: 20081023
  Receipt Date: 20081020
  Transmission Date: 20090506
  Serious: Yes (Other)
  Sender: FDA-Public Use
  Company Number: A0753357A

PATIENT
  Sex: Male

DRUGS (1)
  1. PAXIL [Suspect]
     Indication: PANIC ATTACK

REACTIONS (2)
  - CONGENITAL AORTIC STENOSIS [None]
  - DRUG EXPOSURE DURING PREGNANCY [None]
